FAERS Safety Report 14019370 (Version 1)
Quarter: 2017Q3

REPORT INFORMATION
  Report Type: Spontaneous
  Country: US (occurrence: US)
  Receive Date: 20170928
  Receipt Date: 20170928
  Transmission Date: 20171128
  Serious: Yes (Other)
  Sender: FDA-Public Use
  Company Number: US-SUN PHARMACEUTICAL INDUSTRIES LTD-2016US-115111

PATIENT
  Age: 44 Year
  Sex: Male

DRUGS (2)
  1. CHLOROTHIAZIDE. [Suspect]
     Active Substance: CHLOROTHIAZIDE
     Indication: POLYURIA
     Dosage: UNK
     Route: 042
  2. BUMETANIDE. [Suspect]
     Active Substance: BUMETANIDE
     Indication: POLYURIA
     Route: 042

REACTIONS (4)
  - Agitation [Recovered/Resolved]
  - Tremor [Recovered/Resolved]
  - Feeling abnormal [Recovered/Resolved]
  - Blood potassium decreased [Recovering/Resolving]
